FAERS Safety Report 14634668 (Version 1)
Quarter: 2018Q1

REPORT INFORMATION
  Report Type: Spontaneous
  Country: US (occurrence: US)
  Receive Date: 20180314
  Receipt Date: 20180314
  Transmission Date: 20180509
  Serious: No
  Sender: FDA-Public Use
  Company Number: US-PFIZER INC-2018104982

PATIENT
  Age: 20 Year
  Sex: Male
  Weight: 63.5 kg

DRUGS (1)
  1. EFFEXOR XR [Suspect]
     Active Substance: VENLAFAXINE HYDROCHLORIDE
     Indication: DEPRESSION
     Dosage: 37.5 MG, CAPSULE, ONCE A DAY
     Route: 048
     Dates: start: 201710

REACTIONS (2)
  - Libido decreased [Unknown]
  - Erectile dysfunction [Unknown]
